FAERS Safety Report 13443165 (Version 4)
Quarter: 2017Q3

REPORT INFORMATION
  Report Type: Spontaneous
  Country: US (occurrence: US)
  Receive Date: 20170414
  Receipt Date: 20170816
  Transmission Date: 20171127
  Serious: No
  Sender: FDA-Public Use
  Company Number: US-PFIZER INC-2017155587

PATIENT
  Sex: Female

DRUGS (1)
  1. NOREPINEPHRINE BITARTRATE. [Suspect]
     Active Substance: NOREPINEPHRINE BITARTRATE
     Indication: BLOOD PRESSURE MANAGEMENT
     Dosage: UNK
     Route: 042

REACTIONS (2)
  - Drug dose omission [Unknown]
  - Hypotension [Unknown]

NARRATIVE: CASE EVENT DATE: 20170330
